FAERS Safety Report 7155765-5 (Version None)
Quarter: 2010Q4

REPORT INFORMATION
  Report Type: 
  Country: None (occurrence: None)
  Receive Date: 20101214
  Receipt Date: 20101206
  Transmission Date: 20110411
  Serious: Yes (Death, Hospitalization, Other)
  Sender: FDA-Public Use
  Company Number: BR-US-EMD SERONO, INC.-7017783

PATIENT
  Sex: Male

DRUGS (6)
  1. REBIF [Suspect]
     Indication: SECONDARY PROGRESSIVE MULTIPLE SCLEROSIS
     Route: 058
     Dates: start: 20100312, end: 20101108
  2. REBIF [Suspect]
     Indication: RELAPSING-REMITTING MULTIPLE SCLEROSIS
     Route: 058
     Dates: start: 20101124
  3. PARACETAMOL [Concomitant]
  4. VITAMINS [Concomitant]
  5. FOOD SUPPLEMENT [Concomitant]
  6. MIOSAN [Concomitant]

REACTIONS (12)
  - ABDOMINAL DISTENSION [None]
  - BLOOD PRESSURE DECREASED [None]
  - CHROMATURIA [None]
  - DECUBITUS ULCER [None]
  - DEHYDRATION [None]
  - DYSENTERY [None]
  - ESCHAR [None]
  - GASTROENTERITIS [None]
  - PYREXIA [None]
  - SEPTIC SHOCK [None]
  - SKIN DISCOLOURATION [None]
  - SWELLING [None]
